FAERS Safety Report 4450288-6 (Version None)
Quarter: 2004Q3

REPORT INFORMATION
  Report Type: 
  Country: None (occurrence: None)
  Receive Date: 20040915
  Receipt Date: 20040903
  Transmission Date: 20050211
  Serious: Yes (Disabling)
  Sender: FDA-Public Use
  Company Number: 002#4#2004-00177

PATIENT
  Age: 7 Week
  Sex: Female

DRUGS (1)
  1. REGLAN [Suspect]

REACTIONS (2)
  - CONVULSION [None]
  - DEVELOPMENTAL DELAY [None]
